FAERS Safety Report 7783455-4 (Version None)
Quarter: 2011Q3

REPORT INFORMATION
  Report Type: 
  Country: None (occurrence: None)
  Receive Date: 20110928
  Receipt Date: 20110928
  Transmission Date: 20111222
  Serious: Yes (Hospitalization, Disabling)
  Sender: FDA-Public Use
  Company Number: None

PATIENT
  Sex: Female
  Weight: 86.182 kg

DRUGS (1)
  1. HYDROXYZINE [Suspect]
     Indication: PRURITUS
     Dosage: ONE
     Route: 048

REACTIONS (5)
  - PRURITUS [None]
  - HALLUCINATION [None]
  - CONDITION AGGRAVATED [None]
  - DELIRIUM [None]
  - DIZZINESS [None]
